FAERS Safety Report 24358514 (Version 2)
Quarter: 2024Q4

REPORT INFORMATION
  Report Type: Spontaneous
  Country: BR (occurrence: BR)
  Receive Date: 20240924
  Receipt Date: 20241010
  Transmission Date: 20250115
  Serious: No
  Sender: Harrow Health
  Company Number: BR-IMP-2024000740

PATIENT
  Age: 47 Year
  Sex: Male

DRUGS (8)
  1. MAXIDEX [Suspect]
     Active Substance: DEXAMETHASONE
     Indication: Product used for unknown indication
     Dosage: 1 MG (1 DROP PER DAY)
     Route: 065
  2. MAXIDEX [Suspect]
     Active Substance: DEXAMETHASONE
     Indication: Product used for unknown indication
     Dosage: 1 DROP PER DAY
     Route: 065
  3. XOLAIR PFS [Suspect]
     Active Substance: OMALIZUMAB
     Indication: Chronic spontaneous urticaria
     Dosage: 150MG (2 UNITS), NOWADAYS  EVERY 15 DAYS
  4. XOLAIR PFS [Suspect]
     Active Substance: OMALIZUMAB
     Indication: Chronic spontaneous urticaria
     Dosage: UNK; UNKNOWN
     Dates: start: 20240724
  5. ALEGRA [Concomitant]
     Indication: Urticaria
     Route: 065
  6. BILASTINE [Concomitant]
     Active Substance: BILASTINE
     Indication: Urticaria
     Route: 065
  7. BRITENS [Concomitant]
     Indication: Product used for unknown indication
     Route: 065
  8. LEVOCETIRIZINE DIHYDROCHLORIDE [Concomitant]
     Active Substance: LEVOCETIRIZINE DIHYDROCHLORIDE
     Indication: Urticaria
     Route: 065

REACTIONS (3)
  - Eye inflammation [Not Recovered/Not Resolved]
  - Eye infection [Recovering/Resolving]
  - Intraocular pressure increased [Unknown]
